FAERS Safety Report 8269309-8 (Version None)
Quarter: 2012Q2

REPORT INFORMATION
  Report Type: 
  Country: None (occurrence: None)
  Receive Date: 20120409
  Receipt Date: 20120330
  Transmission Date: 20120825
  Serious: Yes (Hospitalization)
  Sender: FDA-Public Use
  Company Number: PHHY2012ES019043

PATIENT
  Age: 75 Year
  Sex: Male

DRUGS (3)
  1. CEFTRIAXONE [Concomitant]
     Indication: NOCARDIOSIS
     Dosage: 2 G, BID
  2. COTRIM [Suspect]
     Indication: NOCARDIOSIS
     Dosage: 15 MG/KG/DAY
  3. LINEZOLID [Concomitant]
     Indication: NOCARDIOSIS
     Dosage: 600 MG, BID

REACTIONS (13)
  - DRUG RASH WITH EOSINOPHILIA AND SYSTEMIC SYMPTOMS [None]
  - HEPATOTOXICITY [None]
  - APLASTIC ANAEMIA [None]
  - NAUSEA [None]
  - PANCYTOPENIA [None]
  - EOSINOPHILIA [None]
  - VOMITING [None]
  - PRURITUS [None]
  - HEPATITIS CHOLESTATIC [None]
  - RASH [None]
  - TOXIC SKIN ERUPTION [None]
  - CONFUSIONAL STATE [None]
  - DIZZINESS [None]
